FAERS Safety Report 4326443-2 (Version None)
Quarter: 2004Q1

REPORT INFORMATION
  Report Type: 
  Country: None (occurrence: None)
  Receive Date: 20040323
  Receipt Date: 20040109
  Transmission Date: 20041129
  Serious: Yes (Hospitalization, Other)
  Sender: FDA-Public Use
  Company Number: US_040199735

PATIENT
  Age: 57 Year
  Sex: Male

DRUGS (1)
  1. CIALIS                (TADALFAIL) [Suspect]

REACTIONS (1)
  - MYOCARDIAL INFARCTION [None]
